FAERS Safety Report 25974023 (Version 1)
Quarter: 2025Q4

REPORT INFORMATION
  Report Type: Spontaneous
  Country: EU (occurrence: EU)
  Receive Date: 20251029
  Receipt Date: 20251029
  Transmission Date: 20260117
  Serious: Yes (Other)
  Sender: EXELIXIS
  Company Number: EU-IPSEN Group, Research and Development-2025-01086

PATIENT
  Age: 72 Year
  Sex: Male

DRUGS (2)
  1. CABOMETYX [Suspect]
     Active Substance: CABOZANTINIB S-MALATE
     Indication: Product used for unknown indication
     Dosage: REDUCED DOSE FROM 40 MG TO 20 MG
     Route: 048
     Dates: start: 20241026
  2. CABOMETYX [Suspect]
     Active Substance: CABOZANTINIB S-MALATE
     Dosage: REDUCED DOSE FROM 40 MG TO 20 MG
     Route: 048

REACTIONS (2)
  - Gastrointestinal toxicity [Unknown]
  - Skin toxicity [Unknown]

NARRATIVE: CASE EVENT DATE: 20241115
